FAERS Safety Report 6326630-8 (Version None)
Quarter: 2009Q3

REPORT INFORMATION
  Report Type: 
  Country: None (occurrence: None)
  Receive Date: 20090825
  Receipt Date: 20090817
  Transmission Date: 20100115
  Serious: Yes (Other)
  Sender: FDA-Public Use
  Company Number: DE-ASTRAZENECA-2009SE05748

PATIENT
  Age: 25 Year
  Sex: Female

DRUGS (2)
  1. SEROQUEL XR [Suspect]
     Indication: BIPOLAR DISORDER
     Route: 048
     Dates: start: 20090201, end: 20090101
  2. SEROQUEL XR [Suspect]
     Route: 048
     Dates: start: 20090101

REACTIONS (9)
  - BODY TEMPERATURE INCREASED [None]
  - GAIT DISTURBANCE [None]
  - HEADACHE [None]
  - LOSS OF CONSCIOUSNESS [None]
  - NAUSEA [None]
  - REVERSIBLE ISCHAEMIC NEUROLOGICAL DEFICIT [None]
  - SYNCOPE [None]
  - VERTIGO [None]
  - VOMITING [None]
